FAERS Safety Report 9768613 (Version 2)
Quarter: 2014Q1

REPORT INFORMATION
  Report Type: Report from Study
  Country: FR (occurrence: FR)
  Receive Date: 20131218
  Receipt Date: 20140218
  Transmission Date: 20141002
  Serious: Yes (Hospitalization)
  Sender: FDA-Public Use
  Company Number: FR-ROCHE-1319776

PATIENT
  Age: 49 Year
  Sex: Male
  Weight: 91 kg

DRUGS (11)
  1. PEG-INTERFERON ALFA 2A [Suspect]
     Indication: CHRONIC HEPATITIS C
     Route: 058
     Dates: start: 20130315, end: 20131002
  2. RIBAVIRIN [Suspect]
     Indication: CHRONIC HEPATITIS C
     Route: 048
     Dates: start: 20130315, end: 20131015
  3. BOCEPREVIR [Suspect]
     Indication: CHRONIC HEPATITIS C
     Route: 048
     Dates: start: 20130412, end: 20131015
  4. GLUCOPHAGE [Concomitant]
     Indication: TYPE 2 DIABETES MELLITUS
     Route: 065
  5. JANUVIA [Concomitant]
     Indication: TYPE 2 DIABETES MELLITUS
     Route: 065
  6. NOCTAMIDE [Concomitant]
     Indication: INSOMNIA
  7. PARKINANE [Concomitant]
  8. SERESTA [Concomitant]
     Indication: ANXIETY
  9. KALEORID LP [Concomitant]
     Route: 065
  10. IXEL [Concomitant]
     Indication: DEPRESSION
  11. THERALENE (FRANCE) [Concomitant]
     Dosage: ONE TIME TO MAKE AUTOLYSE.
     Route: 065

REACTIONS (1)
  - Suicide attempt [Recovered/Resolved with Sequelae]
